FAERS Safety Report 6932925-7 (Version None)
Quarter: 2010Q3

REPORT INFORMATION
  Report Type: 
  Country: None (occurrence: None)
  Receive Date: 20100819
  Receipt Date: 20090914
  Transmission Date: 20110219
  Serious: No
  Sender: FDA-Public Use
  Company Number: US-TYCO HEALTHCARE/MALLINCKRODT-T200901757

PATIENT
  Sex: Male

DRUGS (1)
  1. CONRAY [Suspect]
     Dosage: UNK
     Route: 042
     Dates: start: 20090630, end: 20090630

REACTIONS (3)
  - DRUG ADMINISTRATION ERROR [None]
  - INJECTION SITE EXTRAVASATION [None]
  - NERVE INJURY [None]
